FAERS Safety Report 8436736-5 (Version None)
Quarter: 2012Q2

REPORT INFORMATION
  Report Type: 
  Country: None (occurrence: None)
  Receive Date: 20120614
  Receipt Date: 20120608
  Transmission Date: 20120825
  Serious: Yes (Hospitalization, Other)
  Sender: FDA-Public Use
  Company Number: US-MERCK-1203USA00545

PATIENT
  Age: 62 Year
  Sex: Female

DRUGS (12)
  1. FOSAMAX [Suspect]
     Indication: OSTEOPENIA
     Route: 048
     Dates: start: 19960101, end: 20001001
  2. FOSAMAX [Suspect]
     Route: 048
     Dates: start: 20080101, end: 20100101
  3. HORMONES (UNSPECIFIED) [Concomitant]
     Route: 065
     Dates: start: 19850101, end: 19990101
  4. FOSAMAX [Suspect]
     Route: 048
     Dates: start: 20000101, end: 20080301
  5. FOSAMAX [Suspect]
     Route: 048
     Dates: start: 20080101, end: 20100101
  6. FOSAMAX [Suspect]
     Indication: OSTEOPOROSIS
     Route: 048
     Dates: start: 19960101, end: 20001001
  7. ASCORBIC ACID [Concomitant]
     Route: 065
     Dates: start: 19900101
  8. VITAMINS (UNSPECIFIED) [Concomitant]
     Route: 065
     Dates: start: 19900101
  9. FOSAMAX [Suspect]
     Route: 048
     Dates: start: 20000101, end: 20080301
  10. CHOLECALCIFEROL [Concomitant]
     Indication: OSTEOPENIA
     Route: 065
     Dates: start: 19960101
  11. CALCIUM (UNSPECIFIED) [Concomitant]
     Indication: OSTEOPENIA
     Route: 065
     Dates: start: 19900101
  12. SYNTHROID [Concomitant]
     Indication: HYPOTHYROIDISM
     Route: 065
     Dates: start: 19680101

REACTIONS (11)
  - HYPERCHOLESTEROLAEMIA [None]
  - FEMUR FRACTURE [None]
  - DIARRHOEA [None]
  - FALL [None]
  - VOMITING [None]
  - PAIN IN EXTREMITY [None]
  - ADVERSE EVENT [None]
  - TOOTH DISORDER [None]
  - MENISCUS LESION [None]
  - CATARACT [None]
  - LOW TURNOVER OSTEOPATHY [None]
